FAERS Safety Report 21368517 (Version 1)
Quarter: 2022Q3

REPORT INFORMATION
  Report Type: Spontaneous
  Country: DE (occurrence: DE)
  Receive Date: 20220923
  Receipt Date: 20220923
  Transmission Date: 20221027
  Serious: Yes (Other)
  Sender: FDA-Public Use
  Company Number: DE-ALKEM LABORATORIES LIMITED-DE-ALKEM-2022-09915

PATIENT
  Sex: Male

DRUGS (1)
  1. IBUPROFEN [Suspect]
     Active Substance: IBUPROFEN
     Indication: Toothache
     Dosage: 1 DOSAGE FORM (FILM-COATED TABLET)
     Route: 065
     Dates: start: 20220821

REACTIONS (2)
  - Wound necrosis [Unknown]
  - Blister [Unknown]

NARRATIVE: CASE EVENT DATE: 20220822
